FAERS Safety Report 8327915-6 (Version None)
Quarter: 2012Q2

REPORT INFORMATION
  Report Type: 
  Country: None (occurrence: None)
  Receive Date: 20120502
  Receipt Date: 20120423
  Transmission Date: 20120825
  Serious: Yes (Hospitalization, Other)
  Sender: FDA-Public Use
  Company Number: BR-SANOFI-AVENTIS-2012SA028453

PATIENT
  Age: 72 Year
  Sex: Female
  Weight: 70 kg

DRUGS (10)
  1. ROSUVASTATIN [Concomitant]
     Dosage: STRENGTH: 10 MG
     Route: 048
     Dates: start: 20100101
  2. ASPIRIN [Concomitant]
     Dosage: STRENGTH: 200 MG
     Route: 048
     Dates: start: 20100101
  3. LANTUS [Suspect]
     Indication: TYPE 2 DIABETES MELLITUS
     Route: 058
     Dates: start: 20090101
  4. OLCADIL [Concomitant]
     Dosage: FREQUENCY: WEEKLY OR PRN AND STRENGTH:1 MG
     Route: 048
     Dates: start: 20120101
  5. INSULIN PEN NOS [Suspect]
     Indication: DEVICE THERAPY
     Dates: start: 20090101
  6. AUTOPEN 24 [Suspect]
     Indication: DEVICE THERAPY
     Dates: start: 20090101
  7. APIDRA [Suspect]
     Indication: TYPE 2 DIABETES MELLITUS
     Dosage: 6 TO 8 IU BEFORE LUNCH AND DINNER
     Route: 058
     Dates: start: 20090101
  8. AMLODIPINE BESYLATE [Concomitant]
     Dosage: STRENGTH: 5 MG
     Route: 048
     Dates: start: 20100101
  9. LOSARTAN POTASSIUM [Concomitant]
     Dosage: STRENGTH: 50 MG
     Route: 048
     Dates: start: 20100101
  10. METOPROLOL SUCCINATE [Concomitant]
     Dosage: STRENGTH: 50 MG
     Route: 048
     Dates: start: 20100101

REACTIONS (4)
  - ARTERIAL OCCLUSIVE DISEASE [None]
  - HAEMORRHAGE [None]
  - MYOCARDIAL INFARCTION [None]
  - POST PROCEDURAL HAEMORRHAGE [None]
